FAERS Safety Report 15864619 (Version 5)
Quarter: 2019Q1

REPORT INFORMATION
  Report Type: Report from Study
  Country: US (occurrence: US)
  Receive Date: 20190124
  Receipt Date: 20190318
  Transmission Date: 20190417
  Serious: Yes (Hospitalization, Other)
  Sender: FDA-Public Use
  Company Number: US-BAYER-2019-011832

PATIENT
  Age: 76 Year
  Sex: Male

DRUGS (2)
  1. STIVARGA [Suspect]
     Active Substance: REGORAFENIB
     Indication: COLON CANCER
     Dosage: 80MG DAILY, 21 DAYS ON AND 7 DAYS OFF
     Route: 048
     Dates: start: 20190124, end: 20190213
  2. STIVARGA [Suspect]
     Active Substance: REGORAFENIB
     Indication: COLON CANCER
     Dosage: 160 MG, QD 21 DAYS ON AND 7 DAYS OFF
     Route: 048
     Dates: start: 20190110, end: 20190116

REACTIONS (25)
  - Hypersomnia [None]
  - Anal incontinence [None]
  - Exercise tolerance decreased [Recovering/Resolving]
  - Hypertension [None]
  - Iron deficiency anaemia [None]
  - Diarrhoea [Recovering/Resolving]
  - Somnolence [None]
  - Fatigue [None]
  - Blister [None]
  - Confusional state [None]
  - Colon cancer [None]
  - Musculoskeletal stiffness [None]
  - Muscular weakness [None]
  - Unresponsive to stimuli [None]
  - Asthenia [Recovering/Resolving]
  - Urinary tract infection [None]
  - Dysphonia [None]
  - Pain in extremity [Recovering/Resolving]
  - Fatigue [None]
  - Hospitalisation [None]
  - Pain in extremity [None]
  - Amnesia [None]
  - Product administration error [None]
  - Diarrhoea [None]
  - Fall [None]

NARRATIVE: CASE EVENT DATE: 2019
